FAERS Safety Report 8455880-X (Version None)
Quarter: 2012Q2

REPORT INFORMATION
  Report Type: 
  Country: None (occurrence: None)
  Receive Date: 20120621
  Receipt Date: 20120611
  Transmission Date: 20120825
  Serious: Yes (Hospitalization, Other)
  Sender: FDA-Public Use
  Company Number: US-ELI_LILLY_AND_COMPANY-US201206004315

PATIENT
  Age: 61 Year
  Sex: Female

DRUGS (2)
  1. HUMALOG [Suspect]
     Indication: DIABETES MELLITUS
     Dosage: 20 U, PRN
  2. LANTUS [Concomitant]

REACTIONS (4)
  - CATARACT [None]
  - HYPOGLYCAEMIC UNCONSCIOUSNESS [None]
  - PNEUMONIA [None]
  - BLOOD GLUCOSE INCREASED [None]
